FAERS Safety Report 24444766 (Version 2)
Quarter: 2024Q4

REPORT INFORMATION
  Report Type: Spontaneous
  Country: PT (occurrence: PT)
  Receive Date: 20241016
  Receipt Date: 20241017
  Transmission Date: 20250114
  Serious: No
  Sender: ROCHE
  Company Number: PT-ROCHE-3011048

PATIENT
  Age: 36 Year
  Sex: Female

DRUGS (9)
  1. RITUXIMAB [Suspect]
     Active Substance: RITUXIMAB
     Indication: Multiple sclerosis
     Route: 065
  2. MYCOPHENOLATE MOFETIL [Suspect]
     Active Substance: MYCOPHENOLATE MOFETIL
     Indication: Multiple sclerosis
     Route: 065
  3. GLATIRAMER ACETATE [Suspect]
     Active Substance: GLATIRAMER ACETATE
     Indication: Multiple sclerosis
     Route: 065
  4. CYCLOPHOSPHAMIDE [Suspect]
     Active Substance: CYCLOPHOSPHAMIDE
     Indication: Multiple sclerosis
     Route: 065
  5. NATALIZUMAB [Suspect]
     Active Substance: NATALIZUMAB
     Indication: Multiple sclerosis
     Route: 065
  6. BIOTIN [Suspect]
     Active Substance: BIOTIN
     Indication: Multiple sclerosis
     Route: 065
  7. PHENYTOIN [Suspect]
     Active Substance: PHENYTOIN
     Indication: Multiple sclerosis
     Route: 065
  8. AMANTADINE [Suspect]
     Active Substance: AMANTADINE
     Indication: Multiple sclerosis
     Route: 065
  9. DALFAMPRIDINE [Suspect]
     Active Substance: DALFAMPRIDINE
     Indication: Multiple sclerosis
     Route: 065

REACTIONS (2)
  - Ovarian failure [Unknown]
  - Off label use [Unknown]
